FAERS Safety Report 11102311 (Version 2)
Quarter: 2015Q2

REPORT INFORMATION
  Report Type: Other
  Country: US (occurrence: US)
  Receive Date: 20150511
  Receipt Date: 20150519
  Transmission Date: 20150821
  Serious: Yes (Death)
  Sender: FDA-Public Use
  Company Number: US-UNITED THERAPEUTICS-UNT-2015-005443

PATIENT
  Sex: Female
  Weight: 62.99 kg

DRUGS (1)
  1. REMODULIN [Suspect]
     Active Substance: TREPROSTINIL
     Indication: PULMONARY ARTERIAL HYPERTENSION
     Dosage: 7.5 ?G/KG, CONTINUING
     Route: 041
     Dates: start: 201504

REACTIONS (4)
  - Pulmonary hypertension [Fatal]
  - Subdural haematoma [Fatal]
  - Right ventricular failure [Fatal]
  - Thrombocytopenia [Fatal]
